FAERS Safety Report 8818356 (Version 1)
Quarter: 2012Q4

REPORT INFORMATION
  Report Type: 
  Country: IT (occurrence: IT)
  Receive Date: 20121001
  Receipt Date: 20121001
  Transmission Date: 20130627
  Serious: Yes (Hospitalization)
  Sender: FDA-Public Use
  Company Number: IT-ROCHE-1139040

PATIENT
  Age: 53 Year
  Sex: Female

DRUGS (3)
  1. ZELBORAF [Suspect]
     Indication: METASTATIC MALIGNANT MELANOMA
     Route: 065
     Dates: start: 20120828
  2. CARDIOASPIRIN [Concomitant]
     Route: 048
  3. LASIX [Concomitant]
     Route: 048

REACTIONS (1)
  - Infection [Recovered/Resolved]
